FAERS Safety Report 25378024 (Version 1)
Quarter: 2025Q2

REPORT INFORMATION
  Report Type: Spontaneous
  Country: US (occurrence: US)
  Receive Date: 20250530
  Receipt Date: 20250530
  Transmission Date: 20250716
  Serious: No
  Sender: Kenvue
  Company Number: US-KENVUE-20250502115

PATIENT
  Age: 1 Year
  Sex: Male

DRUGS (4)
  1. CHILDRENS ZYRTEC [Suspect]
     Active Substance: CETIRIZINE HYDROCHLORIDE
     Indication: Urticaria
     Route: 065
  2. CHILDRENS ZYRTEC [Suspect]
     Active Substance: CETIRIZINE HYDROCHLORIDE
     Indication: Rhinorrhoea
  3. BENADRYL [Concomitant]
     Active Substance: DIPHENHYDRAMINE HYDROCHLORIDE
     Indication: Urticaria
     Route: 065
  4. HYDROCORTISONE [Concomitant]
     Active Substance: HYDROCORTISONE
     Indication: Urticaria
     Route: 065

REACTIONS (2)
  - Off label use [Unknown]
  - Therapeutic response unexpected [Unknown]
